FAERS Safety Report 20099900 (Version 4)
Quarter: 2021Q4

REPORT INFORMATION
  Report Type: Report from Study
  Country: BE (occurrence: BE)
  Receive Date: 20211123
  Receipt Date: 20211129
  Transmission Date: 20220303
  Serious: Yes (Other)
  Sender: FDA-Public Use
  Company Number: BE-ABBVIE-21K-013-4170869-00

PATIENT
  Sex: Female
  Weight: 105 kg

DRUGS (7)
  1. CARBIDOPA\LEVODOPA [Suspect]
     Active Substance: CARBIDOPA\LEVODOPA
     Indication: Parkinson^s disease
     Dosage: MD 6.0 ML; CD 2.1 ML/HR DURING 16 HOURS; ED 1.0 ML
     Route: 050
     Dates: start: 20210222, end: 20210225
  2. CARBIDOPA\LEVODOPA [Suspect]
     Active Substance: CARBIDOPA\LEVODOPA
     Dosage: MD 6.0 ML; CD 2.7 ML/HR DURING 16 HOURS; ED 1.5 ML
     Route: 050
     Dates: start: 20210225, end: 20210525
  3. CARBIDOPA\LEVODOPA [Suspect]
     Active Substance: CARBIDOPA\LEVODOPA
     Dosage: MD 5.5 ML; CD 2.5 ML/HR DURING 16 HOURS; ED 1.5 ML
     Route: 050
     Dates: start: 20210525, end: 20210618
  4. CARBIDOPA\LEVODOPA [Suspect]
     Active Substance: CARBIDOPA\LEVODOPA
     Dosage: MD 5.5 ML; CD 2.7 ML/HR DURING 16 HOURS; ED 1.5 ML
     Route: 050
     Dates: start: 20210618, end: 20210621
  5. CARBIDOPA\LEVODOPA [Suspect]
     Active Substance: CARBIDOPA\LEVODOPA
     Dosage: MD 5.5 ML; CD 2.9 ML/HR DURING 16 HOURS; ED 1.5 ML
     Route: 050
     Dates: start: 20210621, end: 20210625
  6. CARBIDOPA\LEVODOPA [Suspect]
     Active Substance: CARBIDOPA\LEVODOPA
     Dosage: MD 5.5 ML; CD 3.2 ML/HR DURING 16 HOURS; ED 1.5 ML
     Route: 050
     Dates: start: 20210625, end: 20211124
  7. CARBIDOPA\LEVODOPA [Suspect]
     Active Substance: CARBIDOPA\LEVODOPA
     Dosage: MD 5.5 ML; CD 2.5 ML/HR DURING 16 HOURS; ED 1.5 ML
     Route: 050
     Dates: start: 20211124

REACTIONS (5)
  - Perforation [Recovering/Resolving]
  - Intra-abdominal pressure increased [Recovering/Resolving]
  - Device occlusion [Recovering/Resolving]
  - Device occlusion [Recovered/Resolved]
  - Pain [Recovering/Resolving]
